FAERS Safety Report 24033286 (Version 1)
Quarter: 2024Q3

REPORT INFORMATION
  Report Type: Spontaneous
  Country: IL (occurrence: IL)
  Receive Date: 20240701
  Receipt Date: 20240701
  Transmission Date: 20241017
  Serious: Yes (Other)
  Sender: BIOVITRUM
  Company Number: IL-BIOVITRUM-2024-IL-009254

PATIENT
  Age: 75 Year
  Sex: Male

DRUGS (1)
  1. ANAKINRA [Suspect]
     Active Substance: ANAKINRA
     Indication: VEXAS syndrome

REACTIONS (9)
  - Acute febrile neutrophilic dermatosis [Unknown]
  - Myelodysplastic syndrome [Unknown]
  - Pyrexia [Unknown]
  - Lung opacity [Unknown]
  - Pleural effusion [Unknown]
  - Injection site reaction [Unknown]
  - Off label use [Unknown]
  - Deep vein thrombosis [Unknown]
  - Superficial vein thrombosis [Unknown]
